FAERS Safety Report 9841866 (Version 1)
Quarter: 2013Q4

REPORT INFORMATION
  Report Type: Spontaneous
  Country: US (occurrence: None)
  Receive Date: 20131219
  Receipt Date: 20131219
  Transmission Date: 20140711
  Serious: Yes (Hospitalization, Other)
  Sender: FDA-Public Use
  Company Number: 163-20785-13044498

PATIENT
  Age: 54 Year
  Sex: Male
  Weight: 59.7 kg

DRUGS (7)
  1. THALOMID [Suspect]
     Indication: MYELOFIBROSIS
     Dosage: 1 IN 1 D
     Route: 048
     Dates: start: 20130702, end: 20130428
  2. HYDROXYZINE [Concomitant]
  3. TRIAMCINOLONE [Concomitant]
  4. PANTOPRAZOLE [Concomitant]
  5. SENNA [Concomitant]
  6. ALPRAZOLAM [Concomitant]
  7. ONDASETRON [Concomitant]

REACTIONS (2)
  - Pyrexia [None]
  - Neutropenia [None]
